FAERS Safety Report 24220790 (Version 2)
Quarter: 2024Q3

REPORT INFORMATION
  Report Type: Spontaneous
  Country: US (occurrence: US)
  Receive Date: 20240818
  Receipt Date: 20240909
  Transmission Date: 20241016
  Serious: No
  Sender: BAUSCH AND LOMB
  Company Number: US-BAUSCHBL-2024BNL031354

PATIENT
  Age: 66 Year
  Sex: Female

DRUGS (2)
  1. LUMIFY [Suspect]
     Active Substance: BRIMONIDINE TARTRATE
     Indication: Ocular hyperaemia
     Route: 047
     Dates: start: 202407, end: 2024
  2. LUMIFY [Suspect]
     Active Substance: BRIMONIDINE TARTRATE

REACTIONS (2)
  - Eye irritation [Recovered/Resolved]
  - Product quality issue [Unknown]

NARRATIVE: CASE EVENT DATE: 20240701
